FAERS Safety Report 15862750 (Version 1)
Quarter: 2019Q1

REPORT INFORMATION
  Report Type: Spontaneous
  Country: US (occurrence: US)
  Receive Date: 20190124
  Receipt Date: 20190124
  Transmission Date: 20190417
  Serious: Yes (Hospitalization)
  Sender: FDA-Public Use
  Company Number: None

PATIENT
  Age: 68 Year
  Sex: Male

DRUGS (5)
  1. MIRTAZAPINE 7.5MG [Concomitant]
     Active Substance: MIRTAZAPINE
  2. ZYTIGA [Suspect]
     Active Substance: ABIRATERONE ACETATE
     Indication: PROSTATE CANCER
     Route: 048
     Dates: start: 20180410
  3. PREDNISONE 5MG [Concomitant]
     Active Substance: PREDNISONE
  4. VITAMIN D3 2000UNT [Concomitant]
  5. CALCIUM 600MG [Concomitant]

REACTIONS (1)
  - Prostate cancer stage IV [None]

NARRATIVE: CASE EVENT DATE: 20190118
